FAERS Safety Report 25349953 (Version 1)
Quarter: 2025Q2

REPORT INFORMATION
  Report Type: Spontaneous
  Country: CZ (occurrence: CZ)
  Receive Date: 20250523
  Receipt Date: 20250523
  Transmission Date: 20250717
  Serious: Yes (Hospitalization, Other)
  Sender: ASTELLAS
  Company Number: CZ-ASTELLAS-2025-AER-027757

PATIENT
  Age: 69 Year

DRUGS (3)
  1. ENFORTUMAB VEDOTIN [Suspect]
     Active Substance: ENFORTUMAB VEDOTIN
     Indication: Bladder transitional cell carcinoma
     Route: 065
     Dates: start: 202408
  2. ENFORTUMAB VEDOTIN [Suspect]
     Active Substance: ENFORTUMAB VEDOTIN
     Route: 065
  3. ENFORTUMAB VEDOTIN [Suspect]
     Active Substance: ENFORTUMAB VEDOTIN
     Route: 065

REACTIONS (8)
  - Malignant neoplasm progression [Unknown]
  - Sepsis [Unknown]
  - Toxicity to various agents [Unknown]
  - Colitis [Unknown]
  - Liver disorder [Unknown]
  - Urinary tract infection [Unknown]
  - Alopecia [Unknown]
  - Decreased appetite [Unknown]

NARRATIVE: CASE EVENT DATE: 20250301
